FAERS Safety Report 12779752 (Version 1)
Quarter: 2016Q3

REPORT INFORMATION
  Report Type: Spontaneous
  Country: US (occurrence: US)
  Receive Date: 20160924
  Receipt Date: 20160924
  Transmission Date: 20161109
  Serious: Yes (Other)
  Sender: FDA-Public Use
  Company Number: None

PATIENT
  Age: 38 Year
  Sex: Male
  Weight: 83.25 kg

DRUGS (2)
  1. VIVITROL [Suspect]
     Active Substance: NALTREXONE
     Indication: DRUG ABUSE
     Dosage: OTHER STRENGTH:;OTHER DOSE:;OTHER FREQUENCY:MONTHLY;OTHER ROUTE:
     Route: 058
     Dates: start: 20160914, end: 20160914
  2. DUTASTERIDE. [Concomitant]
     Active Substance: DUTASTERIDE

REACTIONS (1)
  - Injection site induration [None]

NARRATIVE: CASE EVENT DATE: 20160914
